FAERS Safety Report 6250214-3 (Version None)
Quarter: 2009Q2

REPORT INFORMATION
  Report Type: 
  Country: None (occurrence: None)
  Receive Date: 20090630
  Receipt Date: 20071112
  Transmission Date: 20091009
  Serious: Yes (Hospitalization, Other)
  Sender: FDA-Public Use
  Company Number: US-ASTRAZENECA-2006UW22876

PATIENT
  Age: 40 Year
  Sex: Female
  Weight: 136.4 kg

DRUGS (21)
  1. SEROQUEL [Suspect]
     Indication: SLEEP DISORDER
     Dosage: 200 MG - 300 MG
     Route: 048
     Dates: start: 19970101
  2. SEROQUEL [Suspect]
     Indication: HALLUCINATION, AUDITORY
     Dosage: 200 MG - 300 MG
     Route: 048
     Dates: start: 19970101
  3. SEROQUEL [Suspect]
     Indication: SCHIZOPHRENIA
     Dosage: 200 MG - 300 MG
     Route: 048
     Dates: start: 19970101
  4. SEROQUEL [Suspect]
     Indication: PARANOIA
     Dosage: 200 MG - 300 MG
     Route: 048
     Dates: start: 19970101
  5. SEROQUEL [Suspect]
     Dosage: 100 MG - 800 MG
     Route: 048
     Dates: start: 20000323
  6. SEROQUEL [Suspect]
     Dosage: 100 MG - 800 MG
     Route: 048
     Dates: start: 20000323
  7. SEROQUEL [Suspect]
     Dosage: 100 MG - 800 MG
     Route: 048
     Dates: start: 20000323
  8. SEROQUEL [Suspect]
     Dosage: 100 MG - 800 MG
     Route: 048
     Dates: start: 20000323
  9. RISPERDAL [Concomitant]
     Dates: start: 20010524
  10. LORAZEPAM [Concomitant]
     Dates: start: 20010524
  11. PROZAC [Concomitant]
     Dates: start: 19960130
  12. KLOR-CON [Concomitant]
     Dates: start: 20041106
  13. LASIX [Concomitant]
     Dosage: 20 MG - 80 MG
     Dates: start: 20010613
  14. PLAVIX [Concomitant]
     Dates: start: 20010613
  15. METOLAZONE [Concomitant]
     Dates: start: 20040518
  16. CLORAZEPATE DIPOTASSIUM [Concomitant]
     Dates: start: 19990122
  17. BUSPAR [Concomitant]
     Indication: DEPRESSION
     Dates: start: 20010515
  18. STELAZINE [Concomitant]
     Dates: start: 19960130
  19. VICODIN [Concomitant]
  20. EFFEXOR [Concomitant]
     Dates: start: 20051218
  21. HYDROCORTISONE [Concomitant]
     Dosage: 10 MG - 60 MG
     Dates: start: 20051225

REACTIONS (3)
  - DIABETES MELLITUS [None]
  - NEUROPATHY PERIPHERAL [None]
  - TYPE 2 DIABETES MELLITUS [None]
